FAERS Safety Report 4676949-1 (Version None)
Quarter: 2005Q2

REPORT INFORMATION
  Report Type: 
  Country: None (occurrence: None)
  Receive Date: 20050526
  Receipt Date: 20050516
  Transmission Date: 20051028
  Serious: Yes (Other)
  Sender: FDA-Public Use
  Company Number: 2005077128

PATIENT
  Sex: Female

DRUGS (31)
  1. PROVERA [Suspect]
     Indication: HORMONE REPLACEMENT THERAPY
  2. ESTRATEST H.S. [Suspect]
  3. ... [Concomitant]
     Dates: start: 20010101
  4. ... [Concomitant]
     Dates: start: 20010101
  5. ... [Concomitant]
     Dates: start: 20010101
  6. ... [Concomitant]
     Dates: start: 20010101
  7. ... [Concomitant]
  8. ... [Concomitant]
  9. ... [Concomitant]
  10. ... [Concomitant]
  11. ... [Concomitant]
  12. ... [Concomitant]
  13. ... [Concomitant]
  14. ... [Concomitant]
  15. ... [Concomitant]
  16. ... [Concomitant]
  17. ... [Concomitant]
  18. ... [Concomitant]
  19. ... [Concomitant]
  20. ... [Concomitant]
  21. ... [Concomitant]
  22. ... [Concomitant]
  23. ... [Concomitant]
  24. ... [Concomitant]
  25. ... [Concomitant]
  26. ... [Concomitant]
  27. ... [Concomitant]
  28. ... [Concomitant]
  29. ... [Concomitant]
  30. ... [Concomitant]
  31. ... [Concomitant]

REACTIONS (1)
  - BREAST CANCER FEMALE [None]
